FAERS Safety Report 6095942-8 (Version None)
Quarter: 2009Q1

REPORT INFORMATION
  Report Type: 
  Country: None (occurrence: None)
  Receive Date: 20090227
  Receipt Date: 20080721
  Transmission Date: 20090719
  Serious: No
  Sender: FDA-Public Use
  Company Number: A0738665A

PATIENT
  Age: 54 Year
  Sex: Female

DRUGS (9)
  1. LAMICTAL [Suspect]
     Indication: DEPRESSION
     Dosage: 18.75MG ALTERNATE DAYS
     Route: 048
     Dates: start: 20080703
  2. AMPHETAMINE SULFATE [Concomitant]
  3. FEXOFENADINE [Concomitant]
  4. HYDROCHLOROTHIAZIDE [Concomitant]
  5. TRAMADOL HCL [Concomitant]
  6. BENICAR [Concomitant]
  7. LEVOXYL [Concomitant]
  8. ZOLPIDEM [Concomitant]
  9. BENTYL [Concomitant]

REACTIONS (1)
  - RASH [None]
